FAERS Safety Report 25183719 (Version 1)
Quarter: 2025Q2

REPORT INFORMATION
  Report Type: Spontaneous
  Country: GB (occurrence: GB)
  Receive Date: 20250410
  Receipt Date: 20250410
  Transmission Date: 20250717
  Serious: Yes (Hospitalization, Other)
  Sender: SANDOZ
  Company Number: GB-002147023-NVSC2025GB056711

PATIENT
  Age: 81 Year
  Sex: Female

DRUGS (1)
  1. EXELON [Suspect]
     Active Substance: RIVASTIGMINE TARTRATE
     Indication: Dementia Alzheimer^s type
     Route: 065

REACTIONS (5)
  - Akinesia [Unknown]
  - Neoplasm [Unknown]
  - Dementia Alzheimer^s type [Unknown]
  - Stress [Unknown]
  - Weight decreased [Unknown]
